FAERS Safety Report 4637664-3 (Version None)
Quarter: 2005Q2

REPORT INFORMATION
  Report Type: 
  Country: None (occurrence: None)
  Receive Date: 20050418
  Receipt Date: 20050307
  Transmission Date: 20051028
  Serious: Yes (Hospitalization)
  Sender: FDA-Public Use
  Company Number: DE-GLAXOSMITHKLINE-D0046106A

PATIENT
  Age: 75 Year
  Sex: Female

DRUGS (10)
  1. QUILONUM RETARD [Suspect]
     Dosage: 225MG PER DAY
     Route: 048
     Dates: start: 20040801, end: 20041012
  2. ZYPREXA [Suspect]
     Route: 048
     Dates: start: 20040801, end: 20040922
  3. MOLSIDOMIN [Concomitant]
     Dosage: 8MG PER DAY
     Route: 048
     Dates: start: 20040101
  4. ISOSORBIDE DINITRATE [Concomitant]
     Dates: start: 20040101
  5. ASPIRIN [Concomitant]
     Dosage: 100MG PER DAY
     Route: 048
     Dates: start: 20040101
  6. ZOCOR [Concomitant]
     Dosage: 20MG PER DAY
     Route: 048
     Dates: start: 20040101, end: 20040923
  7. PROPRA RATIOPHARM [Concomitant]
     Dosage: 30MG PER DAY
     Route: 048
     Dates: start: 20040101, end: 20041018
  8. FAVISTAN [Concomitant]
     Dosage: 1TAB PER DAY
     Route: 048
     Dates: start: 20040101, end: 20041004
  9. SEROQUEL [Concomitant]
     Route: 065
  10. LEPONEX [Concomitant]
     Route: 065

REACTIONS (4)
  - CHILLS [None]
  - MASKED FACIES [None]
  - PARKINSONIAN GAIT [None]
  - PARKINSONISM [None]
